FAERS Safety Report 5450168-3 (Version None)
Quarter: 2007Q3

REPORT INFORMATION
  Report Type: 
  Country: None (occurrence: None)
  Receive Date: 20070912
  Receipt Date: 20070911
  Transmission Date: 20080115
  Serious: Yes (Other)
  Sender: FDA-Public Use
  Company Number: D0054533A

PATIENT
  Sex: Male

DRUGS (1)
  1. ELONTRIL [Suspect]
     Dosage: 300MG PER DAY
     Route: 048
     Dates: start: 20070701

REACTIONS (4)
  - CARCINOEMBRYONIC ANTIGEN INCREASED [None]
  - DRY MOUTH [None]
  - HYPERHIDROSIS [None]
  - PANCREATIC CARCINOMA [None]
